FAERS Safety Report 9422052 (Version 1)
Quarter: 2013Q3

REPORT INFORMATION
  Report Type: Spontaneous
  Country: US (occurrence: None)
  Receive Date: 20130725
  Receipt Date: 20130725
  Transmission Date: 20140515
  Serious: No
  Sender: FDA-Public Use
  Company Number: None

PATIENT
  Age: 52 Year
  Sex: Male
  Weight: 93.8 kg

DRUGS (1)
  1. PROPOFOL [Suspect]
     Dosage: 26 ML/HR CONTINUOUS IV DRIP
     Route: 041
     Dates: start: 20130723, end: 20130724

REACTIONS (3)
  - Drug effect decreased [None]
  - Treatment failure [None]
  - Product quality issue [None]
